FAERS Safety Report 4980942-9 (Version None)
Quarter: 2006Q2

REPORT INFORMATION
  Report Type: 
  Country: None (occurrence: None)
  Receive Date: 20060418
  Receipt Date: 20060404
  Transmission Date: 20061013
  Serious: Yes (Other)
  Sender: FDA-Public Use
  Company Number: T200600100

PATIENT
  Age: 56 Year
  Sex: Male
  Weight: 79.4 kg

DRUGS (3)
  1. OXYCODONE HCL [Suspect]
     Indication: BACK PAIN
     Dosage: 5 MG, PRN, ORAL
     Route: 048
     Dates: start: 19960101, end: 20060301
  2. ANTIHISTAMINES [Concomitant]
  3. LORAZEPAM [Concomitant]

REACTIONS (22)
  - ABDOMINAL DISTENSION [None]
  - BLOOD URINE PRESENT [None]
  - BRONCHITIS [None]
  - CHEST DISCOMFORT [None]
  - CHILLS [None]
  - CHROMATURIA [None]
  - DIZZINESS [None]
  - DRUG INEFFECTIVE [None]
  - DYSPEPSIA [None]
  - GASTRITIS [None]
  - HAEMATEMESIS [None]
  - HAEMATOCHEZIA [None]
  - HEADACHE [None]
  - HEART RATE INCREASED [None]
  - INSOMNIA [None]
  - PROTEIN URINE PRESENT [None]
  - SINUS CONGESTION [None]
  - SPUTUM CULTURE POSITIVE [None]
  - STREPTOCOCCAL INFECTION [None]
  - SUICIDAL IDEATION [None]
  - TONGUE BLACK HAIRY [None]
  - WEIGHT DECREASED [None]
